FAERS Safety Report 23848604 (Version 1)
Quarter: 2024Q2

REPORT INFORMATION
  Report Type: Spontaneous
  Country: US (occurrence: US)
  Receive Date: 20240513
  Receipt Date: 20240513
  Transmission Date: 20240716
  Serious: No
  Sender: FDA-Public Use
  Company Number: US-PERRIGO-23US007397

PATIENT
  Age: 24 Year
  Sex: Female
  Weight: 68.027 kg

DRUGS (4)
  1. MICONAZOLE 3 COMBINATION PACK [Suspect]
     Active Substance: MICONAZOLE NITRATE
     Indication: Urinary tract infection
     Dosage: UNKNOWN, SINGLE
     Route: 067
     Dates: start: 20230627, end: 20230627
  2. MICONAZOLE 3 COMBINATION PACK [Suspect]
     Active Substance: MICONAZOLE NITRATE
     Indication: Urinary tract infection
     Dosage: UNKNOWN, SINGLE
     Route: 067
     Dates: start: 20230627, end: 20230627
  3. PEPCID [Concomitant]
     Active Substance: FAMOTIDINE
     Indication: Nausea
     Dosage: UNK
     Route: 065
     Dates: start: 2023
  4. PEPCID [Concomitant]
     Active Substance: FAMOTIDINE
     Indication: Gastrooesophageal reflux disease

REACTIONS (4)
  - Vulvovaginal burning sensation [Recovering/Resolving]
  - Incorrect route of product administration [Unknown]
  - Off label use [Unknown]
  - Maternal exposure during pregnancy [Unknown]

NARRATIVE: CASE EVENT DATE: 20230627
